FAERS Safety Report 25400565 (Version 1)
Quarter: 2025Q2

REPORT INFORMATION
  Report Type: Report from Study
  Country: IN (occurrence: IN)
  Receive Date: 20250605
  Receipt Date: 20250605
  Transmission Date: 20250716
  Serious: Yes (Hospitalization)
  Sender: NOVARTIS
  Company Number: IN-002147023-NVSC2025IN029413

PATIENT
  Sex: Male

DRUGS (2)
  1. CERTICAN [Suspect]
     Active Substance: EVEROLIMUS
     Indication: Renal transplant
     Route: 048
  2. CERTICAN [Suspect]
     Active Substance: EVEROLIMUS
     Route: 048

REACTIONS (3)
  - Diarrhoea [Unknown]
  - Asthenia [Unknown]
  - Pyrexia [Unknown]
